FAERS Safety Report 10213830 (Version 1)
Quarter: 2014Q2

REPORT INFORMATION
  Report Type: Spontaneous
  Country: US (occurrence: None)
  Receive Date: 20140529
  Receipt Date: 20140529
  Transmission Date: 20141212
  Serious: Yes (Hospitalization, Other)
  Sender: FDA-Public Use
  Company Number: US-ZYDUS-003541

PATIENT
  Age: 46 Year
  Sex: Male

DRUGS (1)
  1. LEVOFLOXACIN (LEVOFLOXACIN) [Suspect]
     Route: 048

REACTIONS (6)
  - Osmotic demyelination syndrome [None]
  - Hypoglycaemia [None]
  - Unresponsive to stimuli [None]
  - Hypothermia [None]
  - Bradypnoea [None]
  - Quadriparesis [None]
